FAERS Safety Report 18147380 (Version 3)
Quarter: 2020Q3

REPORT INFORMATION
  Report Type: Spontaneous
  Country: US (occurrence: US)
  Receive Date: 20200813
  Receipt Date: 20200922
  Transmission Date: 20201103
  Serious: No
  Sender: FDA-Public Use
  Company Number: US-BAUSCH-BL-2020-021822

PATIENT
  Age: 79 Year
  Sex: Male
  Weight: 76.27 kg

DRUGS (3)
  1. KETOTIFEN FUMARATE CVS [Concomitant]
     Indication: PRODUCT USED FOR UNKNOWN INDICATION
     Route: 047
  2. NEOMYCIN AND POLYMYXIN B SULFATES AND HYDROCORTISONE OTIC SUSP [Suspect]
     Active Substance: HYDROCORTISONE\NEOMYCIN SULFATE\POLYMYXIN B SULFATE
     Indication: EAR INFECTION
     Dosage: 3 DROPS IN THE RIGHT EAR X 7 DAYS
     Route: 001
     Dates: start: 20200728, end: 20200729
  3. NEOMYCIN AND POLYMYXIN B SULFATES AND HYDROCORTISONE OTIC SUSP [Suspect]
     Active Substance: HYDROCORTISONE\NEOMYCIN SULFATE\POLYMYXIN B SULFATE
     Dosage: PLACED SUSPENSION IN BOTH EYES
     Route: 047
     Dates: start: 20200730

REACTIONS (2)
  - Incorrect route of product administration [Unknown]
  - Eye pain [Recovering/Resolving]

NARRATIVE: CASE EVENT DATE: 20200730
